FAERS Safety Report 5850603-2 (Version None)
Quarter: 2008Q3

REPORT INFORMATION
  Report Type: 
  Country: None (occurrence: None)
  Receive Date: 20080820
  Receipt Date: 20080811
  Transmission Date: 20090109
  Serious: Yes (Other)
  Sender: FDA-Public Use
  Company Number: US-JNJFOC-20080802870

PATIENT
  Sex: Female
  Weight: 92.08 kg

DRUGS (3)
  1. TOPAMAX [Suspect]
     Indication: DEPRESSION
     Route: 048
  2. PROZAC [Concomitant]
     Indication: DRUG USE FOR UNKNOWN INDICATION
     Route: 048
  3. TRAZODONE HCL [Concomitant]
     Indication: DRUG USE FOR UNKNOWN INDICATION
     Route: 048

REACTIONS (4)
  - AGGRESSION [None]
  - ANGER [None]
  - APHASIA [None]
  - VISION BLURRED [None]
